FAERS Safety Report 7256244-7 (Version None)
Quarter: 2011Q1

REPORT INFORMATION
  Report Type: 
  Country: None (occurrence: None)
  Receive Date: 20110129
  Receipt Date: 20100628
  Transmission Date: 20110831
  Serious: No
  Sender: FDA-Public Use
  Company Number: US-ABBOTT-10P-163-0630808-00

PATIENT
  Sex: Female
  Weight: 99.88 kg

DRUGS (3)
  1. HUMIRA [Suspect]
     Indication: PSORIATIC ARTHROPATHY
  2. HUMIRA [Suspect]
     Indication: PSORIASIS
     Route: 058
  3. ADVIL [Concomitant]
     Indication: PSORIATIC ARTHROPATHY

REACTIONS (7)
  - INJECTION SITE PAIN [None]
  - INJECTION SITE HAEMORRHAGE [None]
  - INJECTION SITE ERYTHEMA [None]
  - DRUG INEFFECTIVE [None]
  - INJECTION SITE PRURITUS [None]
  - INJECTION SITE PAPULE [None]
  - INCORRECT DOSE ADMINISTERED [None]
